FAERS Safety Report 19221614 (Version 2)
Quarter: 2021Q2

REPORT INFORMATION
  Report Type: Report from Study
  Country: CA (occurrence: CA)
  Receive Date: 20210505
  Receipt Date: 20210514
  Transmission Date: 20210717
  Serious: Yes (Other)
  Sender: FDA-Public Use
  Company Number: CA-EISAI MEDICAL RESEARCH-EC-2021-091840

PATIENT
  Age: 69 Year
  Sex: Male

DRUGS (21)
  1. AMITRIPTYLINE [Suspect]
     Active Substance: AMITRIPTYLINE
     Indication: PRODUCT USED FOR UNKNOWN INDICATION
     Dosage: FREQUENCY UNKNOWN
     Route: 065
  2. AMITRIPTYLINE [Suspect]
     Active Substance: AMITRIPTYLINE
     Dosage: FREQUENCY UNKNOWN
     Route: 065
  3. BISACODYL. [Suspect]
     Active Substance: BISACODYL
     Indication: PRODUCT USED FOR UNKNOWN INDICATION
     Dosage: FREQUENCY UNKNOWN
     Route: 065
  4. CARBAMAZEPINE. [Suspect]
     Active Substance: CARBAMAZEPINE
     Indication: MIGRAINE
     Dosage: FREQUENCY UNKNOWN
     Route: 065
  5. DOCUSATE [Suspect]
     Active Substance: DOCUSATE
     Indication: MIGRAINE
     Dosage: FREQUENCY UNKNOWN
     Route: 065
  6. PARIET [Suspect]
     Active Substance: RABEPRAZOLE SODIUM
     Indication: MIGRAINE
     Route: 065
  7. ATORVASTATIN CALCIUM. [Suspect]
     Active Substance: ATORVASTATIN CALCIUM
     Indication: MIGRAINE
     Dosage: FREQUENCY UNKNOWN
     Route: 065
  8. MORPHINE [Suspect]
     Active Substance: MORPHINE
     Dosage: PROLONGED?RELEASE TABLET
     Route: 065
  9. CEPHALEXIN MONOHYDRATE. [Concomitant]
     Active Substance: CEPHALEXIN MONOHYDRATE
     Indication: PRODUCT USED FOR UNKNOWN INDICATION
     Route: 065
  10. MORPHINE [Suspect]
     Active Substance: MORPHINE
     Indication: MIGRAINE
     Route: 065
  11. SULFASALAZINE. [Suspect]
     Active Substance: SULFASALAZINE
     Indication: MIGRAINE
     Dosage: DOSE AND FREQUENCY UNKNOWN
     Route: 065
  12. MOXIFLOXACIN HYDROCHLORIDE. [Concomitant]
     Active Substance: MOXIFLOXACIN HYDROCHLORIDE
     Indication: PRODUCT USED FOR UNKNOWN INDICATION
     Route: 065
  13. PREDNISONE. [Concomitant]
     Active Substance: PREDNISONE
     Indication: PRODUCT USED FOR UNKNOWN INDICATION
     Route: 065
  14. MOMETASONE FUROATE. [Suspect]
     Active Substance: MOMETASONE FUROATE
     Indication: PRODUCT USED FOR UNKNOWN INDICATION
     Dosage: FREQUENCY UNKNOWN
     Route: 055
  15. BIAXIN [Concomitant]
     Active Substance: CLARITHROMYCIN
     Indication: PRODUCT USED FOR UNKNOWN INDICATION
     Dosage: TABLET (EXTENDED RELEASE)
     Route: 065
  16. ULTIBRO BREEZHALER [Suspect]
     Active Substance: GLYCOPYRRONIUM\INDACATEROL
     Indication: MIGRAINE
     Route: 055
  17. CIPRO [Suspect]
     Active Substance: CIPROFLOXACIN HYDROCHLORIDE
     Indication: MIGRAINE
     Route: 065
  18. MOMETASONE FUROATE. [Suspect]
     Active Substance: MOMETASONE FUROATE
     Dosage: FREQUENCY UNKNOWN
     Route: 055
  19. DOCUSATE [Suspect]
     Active Substance: DOCUSATE
     Dosage: FREQUENCY UNKNOWN
     Route: 065
  20. MOMETASONE FUROATE. [Suspect]
     Active Substance: MOMETASONE FUROATE
     Dosage: FREQUENCY UNKNOWN
     Route: 055
  21. PREGABALIN. [Suspect]
     Active Substance: PREGABALIN
     Indication: MIGRAINE
     Dosage: DOSE AND FREQUENCY UNKNOWN
     Route: 065

REACTIONS (13)
  - Asthma [Unknown]
  - Dyskinesia [Unknown]
  - Limb injury [Unknown]
  - Respiration abnormal [Unknown]
  - Oedema [Unknown]
  - Dizziness [Unknown]
  - Drug intolerance [Unknown]
  - Dysarthria [Unknown]
  - Sitting disability [Unknown]
  - Pain [Unknown]
  - Clumsiness [Unknown]
  - Speech disorder [Unknown]
  - Product use in unapproved indication [Unknown]
